FAERS Safety Report 11193251 (Version 1)
Quarter: 2015Q2

REPORT INFORMATION
  Report Type: Spontaneous
  Country: US (occurrence: None)
  Receive Date: 20150615
  Receipt Date: 20150615
  Transmission Date: 20150821
  Serious: Yes (Life-Threatening, Hospitalization, Disabling)
  Sender: FDA-Public Use
  Company Number: None

PATIENT
  Age: 64 Year
  Sex: Female
  Weight: 68.04 kg

DRUGS (8)
  1. TEGRETOL [Concomitant]
     Active Substance: CARBAMAZEPINE
  2. ELAVIL [Concomitant]
     Active Substance: AMITRIPTYLINE HYDROCHLORIDE
  3. LEXAPRO [Concomitant]
     Active Substance: ESCITALOPRAM OXALATE
  4. SYNTHROID [Concomitant]
     Active Substance: LEVOTHYROXINE SODIUM
  5. FISH OIL [Concomitant]
     Active Substance: FISH OIL
  6. SUBOXONE [Suspect]
     Active Substance: BUPRENORPHINE HYDROCHLORIDE\NALOXONE HYDROCHLORIDE
     Indication: DRUG DEPENDENCE
     Dosage: 8 MG 1 FILM BID X 7 UNDER TONGUE
     Dates: start: 20150126, end: 20150405
  7. OMEGA 3 [Concomitant]
     Active Substance: OMEGA-3 FATTY ACIDS
  8. MULTI VITAMIN [Concomitant]
     Active Substance: VITAMINS

REACTIONS (14)
  - Anxiety [None]
  - Heart rate irregular [None]
  - Chest pain [None]
  - Fall [None]
  - Joint injury [None]
  - Heart injury [None]
  - Pain [None]
  - Hypertension [None]
  - Fatigue [None]
  - Balance disorder [None]
  - Electrocardiogram QT prolonged [None]
  - Coordination abnormal [None]
  - Dizziness [None]
  - Disorientation [None]

NARRATIVE: CASE EVENT DATE: 20150126
